FAERS Safety Report 7820534-7 (Version None)
Quarter: 2011Q4

REPORT INFORMATION
  Report Type: 
  Country: None (occurrence: None)
  Receive Date: 20111018
  Receipt Date: 20111005
  Transmission Date: 20120403
  Serious: Yes (Hospitalization, Other)
  Sender: FDA-Public Use
  Company Number: PHHY2011MX88072

PATIENT
  Age: 89 Year
  Sex: Female

DRUGS (1)
  1. EXFORGE HCT [Suspect]
     Indication: HYPERTENSION
     Dosage: 1 DF, DAILY (320 MG VALS/10 MG AMLO\25 MG HYDR)
     Dates: start: 20101001

REACTIONS (3)
  - FLUID RETENTION [None]
  - PULMONARY OEDEMA [None]
  - OEDEMA [None]
